FAERS Safety Report 9187200 (Version 2)
Quarter: 2013Q2

REPORT INFORMATION
  Report Type: Spontaneous
  Country: AU (occurrence: AU)
  Receive Date: 20130325
  Receipt Date: 20130419
  Transmission Date: 20140414
  Serious: Yes (Death, Other)
  Sender: FDA-Public Use
  Company Number: AU-B.I. PHARMACEUTICALS,INC./RIDGEFIELD-2013-AU-00305AU

PATIENT
  Age: 80 Year
  Sex: Male

DRUGS (7)
  1. PRADAXA [Suspect]
     Indication: CEREBROVASCULAR ACCIDENT PROPHYLAXIS
     Dosage: 220 MG
     Dates: start: 20111005
  2. PRADAXA [Suspect]
     Indication: ATRIAL FIBRILLATION
  3. CARDIZEM [Concomitant]
     Dosage: 180 MG
     Dates: start: 2003
  4. TEVETEN PLUS [Concomitant]
     Dosage: 600/12.5 MG
     Dates: start: 2005
  5. CLOPIDOGREL [Concomitant]
     Dosage: 75 MG
     Dates: start: 20120730
  6. DIGOXIN [Concomitant]
     Dosage: 62.5 MCG
     Dates: start: 2003
  7. LIPITOR [Concomitant]
     Dosage: 80 MG

REACTIONS (3)
  - Cardiovascular disorder [Fatal]
  - Cerebrovascular accident [Unknown]
  - Acute myocardial infarction [Unknown]
